FAERS Safety Report 7777701-0 (Version None)
Quarter: 2011Q3

REPORT INFORMATION
  Report Type: 
  Country: None (occurrence: None)
  Receive Date: 20110926
  Receipt Date: 20110918
  Transmission Date: 20111222
  Serious: Yes (Hospitalization)
  Sender: FDA-Public Use
  Company Number: CA-BIOGENIDEC-2011BI002067

PATIENT
  Age: 48 Year
  Sex: Male

DRUGS (2)
  1. TYSABRI [Suspect]
     Route: 042
     Dates: start: 20090106, end: 20110801
  2. TYSABRI [Suspect]
     Indication: RELAPSING-REMITTING MULTIPLE SCLEROSIS
     Route: 042
     Dates: start: 20090106, end: 20110801

REACTIONS (7)
  - MASS [None]
  - SPEECH DISORDER [None]
  - SWOLLEN TONGUE [None]
  - FATIGUE [None]
  - URINARY TRACT INFECTION [None]
  - UHTHOFF'S PHENOMENON [None]
  - DRUG INEFFECTIVE [None]
